FAERS Safety Report 4605967-4 (Version None)
Quarter: 2005Q1

REPORT INFORMATION
  Report Type: 
  Country: None (occurrence: None)
  Receive Date: 20050311
  Receipt Date: 20050224
  Transmission Date: 20050727
  Serious: Yes (Other)
  Sender: FDA-Public Use
  Company Number: ES-GLAXOSMITHKLINE-B0373567A

PATIENT
  Age: 55 Year
  Sex: Male

DRUGS (2)
  1. MALARONE [Suspect]
     Indication: PROPHYLAXIS
     Route: 048
     Dates: start: 20050125, end: 20050209
  2. TEGRETOL [Concomitant]
     Indication: EPILEPSY
     Dosage: 400MG THREE TIMES PER DAY

REACTIONS (1)
  - PSORIASIS [None]
